FAERS Safety Report 11198371 (Version 1)
Quarter: 2015Q2

REPORT INFORMATION
  Report Type: Spontaneous
  Country: US (occurrence: US)
  Receive Date: 20150618
  Receipt Date: 20150618
  Transmission Date: 20150821
  Serious: No
  Sender: FDA-Public Use
  Company Number: US-009507513-1506USA007101

PATIENT
  Age: 51 Year
  Sex: Female

DRUGS (4)
  1. EMEND [Suspect]
     Active Substance: APREPITANT
     Dosage: UNK
  2. EMEND [Suspect]
     Active Substance: APREPITANT
     Indication: NAUSEA
     Dosage: 150MG AS A SINGLE DOSE
     Dates: start: 20150609, end: 20150609
  3. TAMOXIFEN [Concomitant]
     Active Substance: TAMOXIFEN
  4. EMEND [Suspect]
     Active Substance: APREPITANT
     Indication: NAUSEA
     Dosage: UNK, ONCE DAILY
     Route: 048
     Dates: start: 20150610

REACTIONS (2)
  - Therapeutic response unexpected [Unknown]
  - Off label use [Unknown]

NARRATIVE: CASE EVENT DATE: 201506
